FAERS Safety Report 9181234 (Version 2)
Quarter: 2013Q3

REPORT INFORMATION
  Report Type: Spontaneous
  Country: US (occurrence: US)
  Receive Date: 20130322
  Receipt Date: 20130802
  Transmission Date: 20140515
  Serious: Yes (Hospitalization, Other)
  Sender: FDA-Public Use
  Company Number: US-PFIZER INC-2013092998

PATIENT
  Age: 44 Year
  Sex: Male

DRUGS (4)
  1. CHANTIX [Suspect]
     Dosage: UNK
     Dates: start: 20110707, end: 20110717
  2. CHANTIX [Suspect]
     Dosage: STARTING PACK
     Dates: start: 20110715
  3. MORPHINE SULFATE [Concomitant]
     Dosage: 15 MG, 3X/DAY
     Dates: start: 20110715
  4. HYDROCODONE-APAP [Concomitant]
     Dosage: UNK
     Dates: start: 20110715

REACTIONS (4)
  - Loss of consciousness [Unknown]
  - Fall [Unknown]
  - Tremor [Unknown]
  - Foot fracture [Unknown]
